FAERS Safety Report 7272561-9 (Version None)
Quarter: 2011Q1

REPORT INFORMATION
  Report Type: 
  Country: None (occurrence: None)
  Receive Date: 20110203
  Receipt Date: 20110127
  Transmission Date: 20110831
  Serious: Yes (Other)
  Sender: FDA-Public Use
  Company Number: GB-ROCHE-756338

PATIENT

DRUGS (2)
  1. XELODA [Suspect]
     Dosage: REDUCED DOSE
     Route: 065
  2. XELODA [Suspect]
     Route: 065

REACTIONS (1)
  - ALANINE AMINOTRANSFERASE INCREASED [None]
